FAERS Safety Report 23713774 (Version 2)
Quarter: 2024Q4

REPORT INFORMATION
  Report Type: Spontaneous
  Country: US (occurrence: US)
  Receive Date: 20240405
  Receipt Date: 20241007
  Transmission Date: 20250115
  Serious: No
  Sender: INSUD PHARMA
  Company Number: US-INSUD PHARMA-2404US02854

PATIENT

DRUGS (1)
  1. SLYND [Suspect]
     Active Substance: DROSPIRENONE
     Indication: Product used for unknown indication
     Dosage: UNKNOWN
     Route: 048
     Dates: start: 202311

REACTIONS (4)
  - Palpitations [Not Recovered/Not Resolved]
  - Anaemia [Recovered/Resolved]
  - Intermenstrual bleeding [Not Recovered/Not Resolved]
  - Amenorrhoea [Not Recovered/Not Resolved]

NARRATIVE: CASE EVENT DATE: 20240101
